FAERS Safety Report 14198365 (Version 2)
Quarter: 2018Q2

REPORT INFORMATION
  Report Type: Report from Study
  Country: CA (occurrence: CA)
  Receive Date: 20171117
  Receipt Date: 20180515
  Transmission Date: 20180711
  Serious: Yes (Hospitalization, Other)
  Sender: FDA-Public Use
  Company Number: CA-AMGEN-CANSL2017171036

PATIENT
  Age: 52 Year
  Sex: Female

DRUGS (11)
  1. TUMS [Concomitant]
     Active Substance: CALCIUM CARBONATE
  2. ENBREL [Suspect]
     Active Substance: ETANERCEPT
     Dosage: 50 MG, UNK
     Route: 065
  3. ADVIL [Concomitant]
     Active Substance: IBUPROFEN
     Dosage: PRN
  4. OMEGA 3 [Concomitant]
     Active Substance: OMEGA-3 FATTY ACIDS
     Dosage: UNK
  5. ZINC. [Concomitant]
     Active Substance: ZINC
     Dosage: UNK
  6. OREGANO OIL [Concomitant]
     Dosage: UNK
  7. VITAMIN C [Concomitant]
     Active Substance: ASCORBIC ACID
     Dosage: UNK
  8. VITAMIN D [Concomitant]
     Active Substance: CHOLECALCIFEROL
     Dosage: UNK
  9. ZANTAC [Concomitant]
     Active Substance: RANITIDINE HYDROCHLORIDE
  10. ENBREL [Suspect]
     Active Substance: ETANERCEPT
     Indication: RHEUMATOID ARTHRITIS
     Dosage: 50 MG, UNK
     Route: 065
     Dates: start: 20171105
  11. MAGNESIUM [Concomitant]
     Active Substance: MAGNESIUM
     Dosage: UNK

REACTIONS (6)
  - Sinusitis [Unknown]
  - Pain [Unknown]
  - Cholelithiasis [Unknown]
  - Cholecystitis infective [Unknown]
  - Ear infection [Unknown]
  - Pharyngitis [Unknown]

NARRATIVE: CASE EVENT DATE: 201711
